FAERS Safety Report 6386037-4 (Version None)
Quarter: 2009Q4

REPORT INFORMATION
  Report Type: 
  Country: None (occurrence: None)
  Receive Date: 20091002
  Receipt Date: 20090429
  Transmission Date: 20100525
  Serious: No
  Sender: FDA-Public Use
  Company Number: US-ASTRAZENECA-2008UW24724

PATIENT
  Age: 68 Year
  Sex: Female
  Weight: 68.9 kg

DRUGS (4)
  1. ARIMIDEX [Suspect]
     Indication: BREAST CANCER
     Route: 048
     Dates: start: 20081001
  2. LISINOPRIL [Concomitant]
  3. OSCAL WITH VITAMIN D [Concomitant]
  4. FLU SHOT [Concomitant]

REACTIONS (11)
  - ARTHRALGIA [None]
  - BLOOD CHOLESTEROL INCREASED [None]
  - BLOOD PRESSURE INCREASED [None]
  - DIARRHOEA [None]
  - GASTROINTESTINAL DISORDER [None]
  - HOT FLUSH [None]
  - NAUSEA [None]
  - OEDEMA PERIPHERAL [None]
  - SPINAL COLUMN INJURY [None]
  - TOOTH INJURY [None]
  - WEIGHT INCREASED [None]
